FAERS Safety Report 4559480-3 (Version None)
Quarter: 2005Q1

REPORT INFORMATION
  Report Type: 
  Country: None (occurrence: None)
  Receive Date: 20050124
  Receipt Date: 20050113
  Transmission Date: 20050727
  Serious: Yes (Other)
  Sender: FDA-Public Use
  Company Number: US-BRISTOL-MYERS SQUIBB COMPANY-12824934

PATIENT
  Age: 21 Year
  Sex: Female
  Weight: 49 kg

DRUGS (8)
  1. ATAZANAVIR [Suspect]
     Indication: HIV INFECTION
     Route: 048
     Dates: start: 20040424
  2. RITONAVIR [Suspect]
     Indication: HIV INFECTION
     Route: 048
     Dates: start: 20040824
  3. TRUVADA [Suspect]
     Indication: HIV INFECTION
     Route: 048
     Dates: start: 20040824
  4. DEPO-PROVERA [Concomitant]
     Indication: CONTRACEPTION
     Route: 051
  5. MULTI-VITAMIN [Concomitant]
     Route: 048
     Dates: start: 20040824
  6. FLU VACCINE [Concomitant]
     Indication: PROPHYLAXIS
     Route: 030
     Dates: start: 20041026
  7. HEPATITIS B VIRUS VACCINE [Concomitant]
     Indication: PROPHYLAXIS
     Route: 030
     Dates: start: 20041026
  8. HEPATITIS A VIRUS VACCINE [Concomitant]
     Route: 030
     Dates: start: 20041026

REACTIONS (1)
  - HYPERBILIRUBINAEMIA [None]
